FAERS Safety Report 11582940 (Version 2)
Quarter: 2015Q4

REPORT INFORMATION
  Report Type: Report from Study
  Country: CA (occurrence: CA)
  Receive Date: 20151001
  Receipt Date: 20151007
  Transmission Date: 20160304
  Serious: Yes (Other)
  Sender: FDA-Public Use
  Company Number: CA-ROCHE-1588910

PATIENT
  Sex: Female

DRUGS (15)
  1. RITUXAN [Suspect]
     Active Substance: RITUXIMAB
     Route: 042
     Dates: start: 20141204
  2. ALESSE 28 [Concomitant]
     Active Substance: ETHINYL ESTRADIOL\LEVONORGESTREL
  3. SELENIUM [Concomitant]
     Active Substance: SELENIUM
  4. PREDNISONE. [Concomitant]
     Active Substance: PREDNISONE
  5. RITUXAN [Suspect]
     Active Substance: RITUXIMAB
     Indication: GRANULOMATOSIS WITH POLYANGIITIS
     Route: 042
     Dates: start: 20120119
  6. IMURAN [Concomitant]
     Active Substance: AZATHIOPRINE
  7. VITAMIN C [Concomitant]
     Active Substance: ASCORBIC ACID
  8. DIPHENHYDRAMINE HCL [Concomitant]
     Active Substance: DIPHENHYDRAMINE HYDROCHLORIDE
     Indication: PREMEDICATION
     Route: 048
     Dates: start: 20120119
  9. RITUXAN [Suspect]
     Active Substance: RITUXIMAB
     Dosage: WEEKS 2, 3 AND 4
     Route: 042
     Dates: start: 20120126
  10. METHYLPREDNISOLONE. [Concomitant]
     Active Substance: METHYLPREDNISOLONE
     Indication: PREMEDICATION
     Route: 042
     Dates: start: 20120119
  11. VITAMIN E [Concomitant]
     Active Substance: .ALPHA.-TOCOPHEROL
  12. METHOTREXATE [Concomitant]
     Active Substance: METHOTREXATE
  13. ACETAMINOPHEN. [Concomitant]
     Active Substance: ACETAMINOPHEN
     Indication: PREMEDICATION
     Route: 048
     Dates: start: 20120119
  14. FOLIC ACID. [Concomitant]
     Active Substance: FOLIC ACID
  15. RITUXAN [Suspect]
     Active Substance: RITUXIMAB
     Route: 042
     Dates: start: 20120815

REACTIONS (6)
  - Abortion spontaneous [Unknown]
  - Nasal congestion [Unknown]
  - Drug effect decreased [Unknown]
  - Sensory loss [Not Recovered/Not Resolved]
  - Pain [Unknown]
  - Maternal exposure during pregnancy [Unknown]
